FAERS Safety Report 23484974 (Version 1)
Quarter: 2024Q1

REPORT INFORMATION
  Report Type: Report from Study
  Country: US (occurrence: US)
  Receive Date: 20240206
  Receipt Date: 20240206
  Transmission Date: 20240410
  Serious: No
  Sender: FDA-Public Use
  Company Number: US-ORG100014127-2023000281

PATIENT
  Age: 53 Year
  Sex: Female

DRUGS (19)
  1. LYSODREN [Suspect]
     Active Substance: MITOTANE
     Indication: Adrenocortical carcinoma
     Dosage: 1 TABLET TWICE A DAY
     Route: 048
     Dates: start: 20230228
  2. LYSODREN [Suspect]
     Active Substance: MITOTANE
     Indication: Adrenocortical carcinoma
     Dosage: 4 TABLET TWICE A DAY
     Route: 048
  3. ENBREL MINI INJ 50MG/ML [Concomitant]
     Indication: Product used for unknown indication
  4. acetamin tab 325mg [Concomitant]
     Indication: Product used for unknown indication
  5. apap/codeine tab 300-30mg; [Concomitant]
     Indication: Product used for unknown indication
  6. GABAPENTIN [Concomitant]
     Active Substance: GABAPENTIN
     Indication: Product used for unknown indication
  7. METHOCARBAM TAB 500MG [Concomitant]
     Indication: Product used for unknown indication
  8. Vitamin d cap 2000unit [Concomitant]
     Indication: Product used for unknown indication
  9. COLACE CAP 100MG [Concomitant]
     Indication: Product used for unknown indication
  10. FIBER TAB 625MG [Concomitant]
     Indication: Product used for unknown indication
  11. FLUDROCORT TAB 0.1MG [Concomitant]
     Indication: Product used for unknown indication
  12. HYDROCORT TAB 5 MG [Concomitant]
     Indication: Product used for unknown indication
  13. ZYRTEC ALLGY TAB 10 MG [Concomitant]
     Indication: Product used for unknown indication
  14. ONDANSETRON [Concomitant]
     Active Substance: ONDANSETRON
     Indication: Product used for unknown indication
  15. Duloxetine CAP 60 mg [Concomitant]
     Indication: Product used for unknown indication
  16. EVINITY INJ 105 MG [Concomitant]
     Indication: Product used for unknown indication
  17. Pregabalin CAP 50 mg [Concomitant]
     Indication: Product used for unknown indication
  18. Tramadol HCL CAP 150 MG ER [Concomitant]
     Indication: Product used for unknown indication
  19. Rosuvastatin TAB 10 MG [Concomitant]
     Indication: Product used for unknown indication

REACTIONS (4)
  - Brain fog [Not Recovered/Not Resolved]
  - Dizziness [Not Recovered/Not Resolved]
  - Nausea [Not Recovered/Not Resolved]
  - Fatigue [Not Recovered/Not Resolved]

NARRATIVE: CASE EVENT DATE: 20230309
